FAERS Safety Report 12468832 (Version 1)
Quarter: 2016Q2

REPORT INFORMATION
  Report Type: Spontaneous
  Country: FR (occurrence: FR)
  Receive Date: 20160615
  Receipt Date: 20160615
  Transmission Date: 20160815
  Serious: Yes (Other)
  Sender: FDA-Public Use
  Company Number: FR-WATSON-2016-12137

PATIENT
  Age: 66 Year
  Sex: Female

DRUGS (8)
  1. TACROLIMUS (UNKNOWN) [Suspect]
     Active Substance: TACROLIMUS
     Indication: IMMUNOSUPPRESSION
     Dosage: 3 MG, DAILY
     Route: 065
  2. TACROLIMUS (UNKNOWN) [Interacting]
     Active Substance: TACROLIMUS
     Dosage: 6 MG, DAILY
     Route: 065
  3. TACROLIMUS (UNKNOWN) [Interacting]
     Active Substance: TACROLIMUS
     Dosage: 1 MG, DAILY
     Route: 065
  4. PREDNISOLONE. [Concomitant]
     Active Substance: PREDNISOLONE
     Indication: IMMUNOSUPPRESSION
     Dosage: 7.5 MG, DAILY
     Route: 065
  5. VORICONAZOLE. [Concomitant]
     Active Substance: VORICONAZOLE
     Indication: ANTIFUNGAL TREATMENT
     Dosage: UNK
     Route: 065
  6. TACROLIMUS (UNKNOWN) [Interacting]
     Active Substance: TACROLIMUS
     Dosage: 0.5 MG, DAILY
     Route: 065
  7. POSACONAZOLE [Interacting]
     Active Substance: POSACONAZOLE
     Indication: ANTIFUNGAL TREATMENT
     Dosage: 800 MG, DAILY
     Route: 065
  8. MYCOPHENOLATE MOFETIL. [Concomitant]
     Active Substance: MYCOPHENOLATE MOFETIL
     Indication: IMMUNOSUPPRESSION
     Dosage: 1000 MG, DAILY
     Route: 065

REACTIONS (3)
  - Drug interaction [Unknown]
  - Acute kidney injury [Unknown]
  - Drug level above therapeutic [Unknown]
